FAERS Safety Report 5025354-7 (Version None)
Quarter: 2006Q2

REPORT INFORMATION
  Report Type: 
  Country: None (occurrence: None)
  Receive Date: 20060607
  Receipt Date: 20060531
  Transmission Date: 20061013
  Serious: Yes (Other)
  Sender: FDA-Public Use
  Company Number: 2006069767

PATIENT
  Sex: Male

DRUGS (1)
  1. ROGAINE [Suspect]
     Dosage: 4 TIMES RECOMMENDED AMOUNT, ORAL
     Route: 048

REACTIONS (2)
  - CONVULSION [None]
  - SYNCOPE [None]
